FAERS Safety Report 11789351 (Version 1)
Quarter: 2015Q4

REPORT INFORMATION
  Report Type: Report from Study
  Country: US (occurrence: US)
  Receive Date: 20151201
  Receipt Date: 20151201
  Transmission Date: 20160305
  Serious: Yes (Other)
  Sender: FDA-Public Use
  Company Number: PHEH2015US017083

PATIENT
  Sex: Male

DRUGS (2)
  1. TASIGNA [Suspect]
     Active Substance: NILOTINIB
     Indication: CHRONIC MYELOID LEUKAEMIA
     Dosage: 2 DF, BID (150 MG, 2 X 2 DAY)
     Route: 065
     Dates: start: 20130924, end: 20150315
  2. TASIGNA [Suspect]
     Active Substance: NILOTINIB
     Route: 065
     Dates: start: 201504, end: 201508

REACTIONS (1)
  - Chronic myeloid leukaemia [Unknown]
